FAERS Safety Report 16785220 (Version 1)
Quarter: 2019Q3

REPORT INFORMATION
  Report Type: Report from Study
  Country: US (occurrence: US)
  Receive Date: 20190909
  Receipt Date: 20190909
  Transmission Date: 20191005
  Serious: Yes (Death, Hospitalization, Other)
  Sender: FDA-Public Use
  Company Number: US-ADVANZ PHARMA-201908000160

PATIENT

DRUGS (1)
  1. DIGOXIN. [Suspect]
     Active Substance: DIGOXIN
     Indication: CARDIAC AMYLOIDOSIS

REACTIONS (3)
  - Cardiac failure congestive [Fatal]
  - Cardiogenic shock [Fatal]
  - Ventricular tachycardia [Fatal]
